FAERS Safety Report 18230496 (Version 5)
Quarter: 2023Q4

REPORT INFORMATION
  Report Type: Spontaneous
  Country: JP (occurrence: JP)
  Receive Date: 20200903
  Receipt Date: 20231201
  Transmission Date: 20240110
  Serious: Yes (Other)
  Sender: FDA-Public Use
  Company Number: JP-SANOFI-2020SA229236

PATIENT
  Age: 22 Month
  Sex: Male
  Weight: 11.9 kg

DRUGS (11)
  1. SABRIL [Suspect]
     Active Substance: VIGABATRIN
     Indication: Infantile spasms
     Dosage: 450 MG, BID, DAILY DOSAGE: 150 MG/KG/DAY ACTUAL DOSE: 900 MG/DAY
     Route: 048
     Dates: start: 20180907, end: 20200210
  2. SABRIL [Suspect]
     Active Substance: VIGABATRIN
     Dosage: 225 MG, BID
     Route: 048
     Dates: start: 20200211, end: 20200218
  3. SABRIL [Suspect]
     Active Substance: VIGABATRIN
     Dosage: UNK
     Route: 048
     Dates: start: 20180828
  4. VALPROATE SODIUM [Concomitant]
     Active Substance: VALPROATE SODIUM
     Indication: Product used for unknown indication
     Dosage: DAILY DOSAGE: 250 MG
     Route: 048
     Dates: start: 20190626
  5. GASTER [Concomitant]
     Active Substance: FAMOTIDINE
     Indication: Product used for unknown indication
     Dosage: DAILY DOSAGE: 4 MG
     Route: 048
     Dates: start: 20180401
  6. MOSAPRIDE CITRATE [Concomitant]
     Active Substance: MOSAPRIDE CITRATE
     Indication: Product used for unknown indication
     Dosage: DAILY DOSAGE: 3 MG
     Route: 048
     Dates: start: 20180401
  7. CARBOCYSTEINE [Concomitant]
     Active Substance: CARBOCYSTEINE
     Indication: Product used for unknown indication
     Dosage: DAILY DOSAGE: 270 MG
     Route: 048
     Dates: start: 20180401
  8. TRICLOFOS SODIUM [Concomitant]
     Active Substance: TRICLOFOS SODIUM
     Indication: Product used for unknown indication
     Dosage: DAILY DOSAGE: 900 MG
     Route: 048
     Dates: start: 20180401
  9. CERCINE [Concomitant]
     Active Substance: DIAZEPAM
     Indication: Product used for unknown indication
     Dosage: DAILY DOSAGE: 1.3 MG
     Route: 048
     Dates: start: 20180401
  10. DANTRIUM [Concomitant]
     Active Substance: DANTROLENE SODIUM
     Indication: Product used for unknown indication
     Dosage: DAILY DOSAGE: 25 MG
     Route: 048
     Dates: start: 20180910
  11. TIZANIDINE [Concomitant]
     Active Substance: TIZANIDINE
     Indication: Product used for unknown indication
     Dosage: DAILY DOSAGE: 0.3 MG
     Route: 048
     Dates: start: 20180825

REACTIONS (2)
  - Retinogram abnormal [Not Recovered/Not Resolved]
  - Electrocardiogram QT shortened [Unknown]

NARRATIVE: CASE EVENT DATE: 20191209
